FAERS Safety Report 23444351 (Version 1)
Quarter: 2024Q1

REPORT INFORMATION
  Report Type: Spontaneous
  Country: US (occurrence: US)
  Receive Date: 20240125
  Receipt Date: 20240125
  Transmission Date: 20240410
  Serious: Yes (Other)
  Sender: FDA-Public Use
  Company Number: US-RDY-LIT/USA/24/0001047

PATIENT
  Age: 39 Year
  Sex: Female

DRUGS (2)
  1. COLCHICINE [Suspect]
     Active Substance: COLCHICINE
     Indication: Schnitzler^s syndrome
     Dosage: 0.6 MG TWICE DAILY WAS TRIED FOR 5 WEEKS.
  2. DAPSONE [Concomitant]
     Active Substance: DAPSONE
     Indication: Schnitzler^s syndrome
     Dosage: 50-75MG DAILY WAS TRIED FOR APPROXIMATELY 6 WEEKS.

REACTIONS (1)
  - Drug ineffective [Unknown]
